FAERS Safety Report 6328665-8 (Version None)
Quarter: 2009Q3

REPORT INFORMATION
  Report Type: 
  Country: None (occurrence: None)
  Receive Date: 20090826
  Receipt Date: 20071105
  Transmission Date: 20100115
  Serious: Yes (Other)
  Sender: FDA-Public Use
  Company Number: US-ASTRAZENECA-2007UW06081

PATIENT
  Age: 19352 Day
  Sex: Male
  Weight: 93 kg

DRUGS (8)
  1. SEROQUEL [Suspect]
     Indication: SLEEP DISORDER
     Route: 048
     Dates: start: 20030121
  2. SEROQUEL [Suspect]
     Dosage: 25-100MG (FLUCTUATING)
     Route: 048
     Dates: start: 20030213, end: 20040214
  3. GABAPENTIN [Concomitant]
     Route: 048
     Dates: start: 20030303
  4. LISINOPRIL [Concomitant]
     Indication: BLOOD PRESSURE
     Route: 048
     Dates: start: 20030312
  5. LISINOPRIL [Concomitant]
     Indication: RENAL DISORDER
     Route: 048
     Dates: start: 20030312
  6. ATENOLOL [Concomitant]
     Route: 048
     Dates: start: 20030312
  7. NITROSTAT [Concomitant]
     Route: 048
     Dates: start: 20030312
  8. ZOLOFT [Concomitant]
     Route: 048
     Dates: start: 20030312

REACTIONS (5)
  - DIABETIC NEUROPATHY [None]
  - NEUROPATHY PERIPHERAL [None]
  - ORGANIC ERECTILE DYSFUNCTION [None]
  - TYPE 1 DIABETES MELLITUS [None]
  - TYPE 2 DIABETES MELLITUS [None]
